FAERS Safety Report 9405039 (Version 5)
Quarter: 2013Q3

REPORT INFORMATION
  Report Type: Spontaneous
  Country: US (occurrence: US)
  Receive Date: 20130717
  Receipt Date: 20130828
  Transmission Date: 20140515
  Serious: Yes (Other)
  Sender: FDA-Public Use
  Company Number: US-PFIZER INC-2013207789

PATIENT
  Age: 45 Year
  Sex: Female
  Weight: 127 kg

DRUGS (12)
  1. NEURONTIN [Suspect]
     Indication: POST HERPETIC NEURALGIA
     Dosage: 1600 MG (2 TABLETS OF 800MG ), 4X/DAY
     Route: 048
     Dates: start: 2008
  2. VICODIN [Concomitant]
     Dosage: UNK
  3. ELAVIL [Concomitant]
     Dosage: 25 MG, UNK
  4. MAXZIDE [Concomitant]
     Dosage: UNK, HYDROCHLOROTHIAZIDE 25 MG/TRIAMTERENE 37.5 MG
  5. PROVENTIL SOLUTION [Concomitant]
     Dosage: UNK, 2.5 MG/3 ML (0.083%) NEBULIZER SOLUTION
  6. CYMBALTA [Concomitant]
     Dosage: 60 MG, UNK
  7. BACLOFEN [Concomitant]
     Dosage: UNK
  8. ADVIL [Concomitant]
     Dosage: 800 MG, UNK
  9. MOTRIN [Concomitant]
     Dosage: 800 MG, UNK
  10. GLUCOPHAGE [Concomitant]
     Dosage: 500 MG, UNK
  11. PROVENTIL INHALER [Concomitant]
     Dosage: UNK, 90 MCG/ACTUATION INHALER
  12. NORCO [Concomitant]
     Dosage: UNK, HYDROCODONE 7.5 MG/ PARACETAMOL 325 MG

REACTIONS (3)
  - Overdose [Unknown]
  - Diabetes mellitus [Unknown]
  - Pain [Unknown]
